FAERS Safety Report 5170099-6 (Version None)
Quarter: 2006Q4

REPORT INFORMATION
  Report Type: 
  Country: None (occurrence: None)
  Receive Date: 20061201
  Receipt Date: 20050921
  Transmission Date: 20070319
  Serious: Yes (Other)
  Sender: FDA-Public Use
  Company Number: US-2005-030191

PATIENT
  Age: 58 Year
  Sex: Female

DRUGS (4)
  1. BETASERON [Suspect]
     Indication: MULTIPLE SCLEROSIS
     Dosage: 8 MIU, EVERY 2D, SUBCUTANEOUS
     Route: 058
     Dates: start: 19931229
  2. NEURONTIN [Concomitant]
  3. CARBATROL [Concomitant]
  4. BENADRYL ^WARNER-LAMBERT^ /USA/ (DIPHENHYDRAMINE HYDROCHLORIDE) [Concomitant]

REACTIONS (5)
  - DELIRIUM FEBRILE [None]
  - FEELING COLD [None]
  - INFLUENZA LIKE ILLNESS [None]
  - MOANING [None]
  - SOMNOLENCE [None]
